FAERS Safety Report 13390150 (Version 2)
Quarter: 2017Q2

REPORT INFORMATION
  Report Type: Report from Study
  Country: US (occurrence: US)
  Receive Date: 20170331
  Receipt Date: 20170407
  Transmission Date: 20170830
  Serious: Yes (Other)
  Sender: FDA-Public Use
  Company Number: US-TAKEDA-2017TUS006817

PATIENT
  Sex: Female

DRUGS (2)
  1. VORTIOXETINE [Suspect]
     Active Substance: VORTIOXETINE
     Indication: PRODUCT USED FOR UNKNOWN INDICATION
     Dosage: 5 MG, UNK
     Route: 048
     Dates: start: 2016
  2. VORTIOXETINE [Suspect]
     Active Substance: VORTIOXETINE
     Dosage: 10 MG, UNK
     Route: 048
     Dates: start: 20170329

REACTIONS (1)
  - Rib fracture [Unknown]

NARRATIVE: CASE EVENT DATE: 2016
